FAERS Safety Report 23932848 (Version 1)
Quarter: 2024Q2

REPORT INFORMATION
  Report Type: Spontaneous
  Country: PT (occurrence: PT)
  Receive Date: 20240603
  Receipt Date: 20240603
  Transmission Date: 20240716
  Serious: Yes (Hospitalization)
  Sender: FDA-Public Use
  Company Number: PT-MYLANLABS-2024M1049295

PATIENT
  Age: 73 Year
  Sex: Male

DRUGS (2)
  1. AMIODARONE [Suspect]
     Active Substance: AMIODARONE
     Indication: Atrial fibrillation
     Dosage: 200 MILLIGRAM, QD
     Route: 065
  2. BISOPROLOL [Concomitant]
     Active Substance: BISOPROLOL\BISOPROLOL FUMARATE
     Indication: Atrial fibrillation
     Dosage: 10 MILLIGRAM, QD
     Route: 065

REACTIONS (7)
  - Hyperthyroidism [Unknown]
  - Cardiac failure [Recovering/Resolving]
  - Left ventricular dysfunction [Unknown]
  - Tachycardia induced cardiomyopathy [Unknown]
  - Arrhythmia [Unknown]
  - Psychomotor retardation [Unknown]
  - Cognitive disorder [Recovering/Resolving]
